FAERS Safety Report 12590499 (Version 1)
Quarter: 2016Q3

REPORT INFORMATION
  Report Type: Spontaneous
  Country: DE (occurrence: DE)
  Receive Date: 20160725
  Receipt Date: 20160725
  Transmission Date: 20161109
  Serious: Yes (Congenital Anomaly)
  Sender: FDA-Public Use
  Company Number: DE-BIOGEN-2016BI00268412

PATIENT
  Sex: Male
  Weight: 4 kg

DRUGS (3)
  1. TECFIDERA [Suspect]
     Active Substance: DIMETHYL FUMARATE
     Indication: MATERNAL EXPOSURE TIMING UNSPECIFIED
     Dosage: MAINTENANCE DOSE
     Route: 064
     Dates: start: 20140310, end: 20150922
  2. L-THYROXINE [Concomitant]
     Active Substance: LEVOTHYROXINE
     Indication: HYPOTHYROIDISM
     Route: 064
     Dates: start: 2000
  3. NOVORAPID [Concomitant]
     Active Substance: INSULIN ASPART
     Indication: FAMILIAL RISK FACTOR
     Route: 064
     Dates: start: 2000

REACTIONS (2)
  - Foetal exposure during pregnancy [Recovered/Resolved]
  - Pelvic kidney [Not Recovered/Not Resolved]
